FAERS Safety Report 21064296 (Version 2)
Quarter: 2022Q3

REPORT INFORMATION
  Report Type: Spontaneous
  Country: FR (occurrence: FR)
  Receive Date: 20220711
  Receipt Date: 20220718
  Transmission Date: 20221027
  Serious: Yes (Life-Threatening, Hospitalization, Other)
  Sender: FDA-Public Use
  Company Number: None

PATIENT
  Age: 40 Year
  Sex: Female

DRUGS (3)
  1. LORAZEPAM [Suspect]
     Active Substance: LORAZEPAM
     Indication: Product used for unknown indication
     Dosage: 23 DOSAGE FORM, TOTAL
     Route: 048
     Dates: start: 20220607, end: 20220607
  2. BACLOFEN [Suspect]
     Active Substance: BACLOFEN
     Indication: Product used for unknown indication
     Dosage: 1140 MILLIGRAM, TOTAL (114 CP)
     Route: 048
     Dates: start: 20220607, end: 20220607
  3. DIAZEPAM [Suspect]
     Active Substance: DIAZEPAM
     Indication: Product used for unknown indication
     Dosage: 400 MILLIGRAM, TOTAL (40 CP)
     Route: 048
     Dates: start: 20220607, end: 20220607

REACTIONS (3)
  - Coma [Recovering/Resolving]
  - Oliguria [Recovered/Resolved]
  - Poisoning deliberate [Unknown]

NARRATIVE: CASE EVENT DATE: 20220607
